FAERS Safety Report 4748875-0 (Version None)
Quarter: 2005Q3

REPORT INFORMATION
  Report Type: 
  Country: None (occurrence: None)
  Receive Date: 20050819
  Receipt Date: 20050818
  Transmission Date: 20060218
  Serious: Yes (Hospitalization)
  Sender: FDA-Public Use
  Company Number: FR-GLAXOSMITHKLINE-B0391128A

PATIENT
  Age: 30 Year
  Sex: Female

DRUGS (1)
  1. CLAMOXYL [Suspect]
     Indication: TOOTH ABSCESS
     Dosage: 1G TWICE PER DAY
     Route: 048
     Dates: start: 20050731, end: 20050803

REACTIONS (9)
  - ANAPHYLACTOID SHOCK [None]
  - DYSPHAGIA [None]
  - FACE OEDEMA [None]
  - GENERALISED ERYTHEMA [None]
  - LOCALISED OEDEMA [None]
  - OEDEMA PERIPHERAL [None]
  - PHARYNGEAL OEDEMA [None]
  - RESPIRATORY DISORDER [None]
  - URTICARIA [None]
